FAERS Safety Report 17324863 (Version 2)
Quarter: 2020Q1

REPORT INFORMATION
  Report Type: Spontaneous
  Country: US (occurrence: US)
  Receive Date: 20200127
  Receipt Date: 20200217
  Transmission Date: 20200409
  Serious: Yes (Hospitalization)
  Sender: FDA-Public Use
  Company Number: US-THERAPEUTICSMD-2020TMD00153

PATIENT
  Age: 66 Year
  Sex: Female
  Weight: 77.1 kg

DRUGS (8)
  1. VALSARTAN, HYDROCHLOROTHIAZIDE (DIOVAN HCT) [Concomitant]
     Dosage: 1 TABLETS, 1X/DAY
  2. AZELASTINE NASAL [Concomitant]
     Dosage: SPRAY IN NOSE 2X/DAY
     Route: 045
  3. BIJUVA [Suspect]
     Active Substance: ESTRADIOL\PROGESTERONE
     Indication: OESTROGEN REPLACEMENT THERAPY
     Dosage: 1 CAPSULES, 1X/DAY
     Route: 048
     Dates: start: 201910, end: 201911
  4. PRAMIPEXOLE. [Concomitant]
     Active Substance: PRAMIPEXOLE
     Dosage: 1/2 TO 1 TABLET DAILY
  5. XANAX [Concomitant]
     Active Substance: ALPRAZOLAM
     Dosage: UNK, 3X/DAY
  6. LIPITOR [Concomitant]
     Active Substance: ATORVASTATIN CALCIUM
     Dosage: 20 MG, 1X/DAY
  7. PROMETRIUM [Concomitant]
     Active Substance: PROGESTERONE
     Dosage: 4 CAPSULES, 1X/DAY
     Route: 048
     Dates: end: 20191220
  8. FLUTICASONE NASAL (FLONASE) [Concomitant]
     Dosage: IN NOSE AS DIRECTED
     Route: 045

REACTIONS (6)
  - Pneumonia [Recovered/Resolved]
  - Sepsis [Recovering/Resolving]
  - Off label use [Recovered/Resolved]
  - Coccidioidomycosis [Recovering/Resolving]
  - Dizziness [Recovering/Resolving]
  - Asthenia [Recovering/Resolving]

NARRATIVE: CASE EVENT DATE: 201910
